FAERS Safety Report 23876994 (Version 1)
Quarter: 2024Q2

REPORT INFORMATION
  Report Type: Spontaneous
  Country: US (occurrence: US)
  Receive Date: 20240521
  Receipt Date: 20240521
  Transmission Date: 20240715
  Serious: Yes (Other)
  Sender: FDA-Public Use
  Company Number: US-JNJFOC-20240536174

PATIENT
  Age: 8 Decade
  Sex: Male

DRUGS (3)
  1. STELARA [Suspect]
     Active Substance: USTEKINUMAB
     Indication: Colitis ulcerative
     Route: 058
     Dates: start: 202309, end: 20240222
  2. STELARA [Suspect]
     Active Substance: USTEKINUMAB
  3. ZITHROMAX [Suspect]
     Active Substance: AZITHROMYCIN DIHYDRATE
     Indication: Tooth infection
     Route: 065

REACTIONS (2)
  - Colitis ulcerative [Unknown]
  - Tooth infection [Unknown]
